FAERS Safety Report 4699755-0 (Version None)
Quarter: 2005Q2

REPORT INFORMATION
  Report Type: 
  Country: None (occurrence: None)
  Receive Date: 20050623
  Receipt Date: 20050610
  Transmission Date: 20051028
  Serious: Yes (Hospitalization)
  Sender: FDA-Public Use
  Company Number: 2005086670

PATIENT
  Age: 36 Year
  Sex: Male
  Weight: 77.1115 kg

DRUGS (2)
  1. BENADRYL [Suspect]
     Indication: SINUS CONGESTION
     Dosage: 2 ULTRATABS ONCE, ORAL
     Route: 048
     Dates: start: 20050610, end: 20050610
  2. FLUOXETINE HYDROCHLORIDE [Concomitant]

REACTIONS (1)
  - CEREBROVASCULAR ACCIDENT [None]
